FAERS Safety Report 20586187 (Version 1)
Quarter: 2022Q1

REPORT INFORMATION
  Report Type: Spontaneous
  Country: DE (occurrence: DE)
  Receive Date: 20220313
  Receipt Date: 20220313
  Transmission Date: 20220424
  Serious: Yes (Other)
  Sender: FDA-Public Use
  Company Number: DE-UCBSA-2022012839

PATIENT
  Age: 61 Year
  Sex: Female
  Weight: 67 kg

DRUGS (12)
  1. CIMZIA [Suspect]
     Active Substance: CERTOLIZUMAB PEGOL
     Indication: Psoriatic arthropathy
     Dosage: 200 MILLIGRAM, EV 2 WEEKS(QOW)
     Route: 058
  2. CIMZIA [Suspect]
     Active Substance: CERTOLIZUMAB PEGOL
     Indication: Rheumatoid arthritis
  3. CIMZIA [Suspect]
     Active Substance: CERTOLIZUMAB PEGOL
     Indication: Ankylosing spondylitis
  4. CIMZIA [Suspect]
     Active Substance: CERTOLIZUMAB PEGOL
     Indication: Polyarthritis
  5. LEVOTHYROXINE SODIUM [Concomitant]
     Active Substance: LEVOTHYROXINE SODIUM
     Indication: Product used for unknown indication
     Dosage: 75 MICROGRAM X1
  6. NOVALGIN (METAMIZOLE SODIUM) [Concomitant]
     Active Substance: METAMIZOLE SODIUM
     Indication: Product used for unknown indication
  7. IBUPROFEN [Concomitant]
     Active Substance: IBUPROFEN
     Indication: Product used for unknown indication
     Dosage: 600 MILLIGRAM, UNK
  8. METAMIZOLE [Concomitant]
     Active Substance: METAMIZOLE
     Indication: Product used for unknown indication
  9. CORTISONE [Concomitant]
     Active Substance: CORTISONE
     Indication: Product used for unknown indication
  10. PFIZER-BIONTECH COVID-19 VACCINE [Concomitant]
     Active Substance: TOZINAMERAN
     Indication: Product used for unknown indication
  11. CARBOPLATIN [Concomitant]
     Active Substance: CARBOPLATIN
     Indication: Adenocarcinoma
  12. PACLITAXEL [Concomitant]
     Active Substance: PACLITAXEL
     Indication: Adenocarcinoma

REACTIONS (14)
  - Endometrial adenocarcinoma [Recovered/Resolved]
  - Lymphocele [Unknown]
  - Cholelithiasis [Unknown]
  - Hepatic steatosis [Unknown]
  - Hepatomegaly [Unknown]
  - Nephrostomy [Unknown]
  - Goitre [Unknown]
  - Salpingo-oophorectomy [Unknown]
  - Radiotherapy [Recovered/Resolved]
  - Lymphadenectomy [Unknown]
  - Uterine dilation and curettage [Unknown]
  - Hysterectomy [Unknown]
  - Chemotherapy [Unknown]
  - COVID-19 immunisation [Unknown]

NARRATIVE: CASE EVENT DATE: 20200831
